FAERS Safety Report 12707178 (Version 1)
Quarter: 2016Q3

REPORT INFORMATION
  Report Type: Report from Study
  Country: US (occurrence: US)
  Receive Date: 20160901
  Receipt Date: 20160901
  Transmission Date: 20161109
  Serious: Yes (Other)
  Sender: FDA-Public Use
  Company Number: US-AMGEN-USASL2016110997

PATIENT
  Age: 61 Year
  Sex: Female

DRUGS (3)
  1. ENBREL [Suspect]
     Active Substance: ETANERCEPT
     Indication: RHEUMATOID ARTHRITIS
     Dosage: 50 MG, QWK
     Route: 065
  2. PREDNISONE. [Concomitant]
     Active Substance: PREDNISONE
  3. LEFLUNOMIDE. [Concomitant]
     Active Substance: LEFLUNOMIDE

REACTIONS (5)
  - Neuropathy peripheral [Not Recovered/Not Resolved]
  - Secretion discharge [Not Recovered/Not Resolved]
  - Purulent discharge [Not Recovered/Not Resolved]
  - Intervertebral disc protrusion [Unknown]
  - Post procedural discharge [Not Recovered/Not Resolved]

NARRATIVE: CASE EVENT DATE: 2016
